FAERS Safety Report 11116687 (Version 3)
Quarter: 2015Q4

REPORT INFORMATION
  Report Type: Spontaneous
  Country: US (occurrence: US)
  Receive Date: 20150515
  Receipt Date: 20151029
  Transmission Date: 20160304
  Serious: Yes (Hospitalization, Disabling, Other)
  Sender: FDA-Public Use
  Company Number: US-ARIAD-2015US004933

PATIENT
  Age: 77 Year
  Sex: Male
  Weight: 99 kg

DRUGS (4)
  1. FISH OIL [Concomitant]
     Active Substance: FISH OIL
     Indication: PRODUCT USED FOR UNKNOWN INDICATION
  2. ICLUSIG [Suspect]
     Active Substance: PONATINIB
     Dosage: 30 MG, QD
     Route: 048
     Dates: start: 20140220
  3. INSULINE GLARGINE [Concomitant]
     Indication: DIABETES MELLITUS
  4. ICLUSIG [Suspect]
     Active Substance: PONATINIB
     Indication: CHRONIC MYELOID LEUKAEMIA
     Dosage: 30 MG, QD
     Route: 048
     Dates: start: 20131207

REACTIONS (1)
  - Basal ganglia infarction [Recovered/Resolved with Sequelae]

NARRATIVE: CASE EVENT DATE: 20150423
